FAERS Safety Report 9569248 (Version 1)
Quarter: 2013Q3

REPORT INFORMATION
  Report Type: Spontaneous
  Country: US (occurrence: US)
  Receive Date: 20130930
  Receipt Date: 20130930
  Transmission Date: 20140515
  Serious: No
  Sender: FDA-Public Use
  Company Number: US-AMGEN-USASP2013059315

PATIENT
  Age: 45 Year
  Sex: Female
  Weight: 61.22 kg

DRUGS (8)
  1. ENBREL [Suspect]
     Indication: PRODUCT USED FOR UNKNOWN INDICATION
     Dosage: 50 MG, QWK
     Route: 058
  2. ORENCIA [Concomitant]
     Dosage: 125 MG, UNK
  3. PLAQUENIL                          /00072602/ [Concomitant]
     Dosage: 200 MG, UNK
  4. ARAVA [Concomitant]
     Dosage: 10 MG, UNK
  5. CYCLOBENZAPRINE [Concomitant]
     Dosage: 5 MG, UNK
  6. IRON [Concomitant]
     Dosage: 325 MG, UNK
  7. MULTIVITAMINS, PLAIN [Concomitant]
     Dosage: UNK
  8. GLUCOSAMINE + CHONDROITIN          /01625901/ [Concomitant]
     Dosage: UNK

REACTIONS (2)
  - Drug ineffective [Unknown]
  - Injection site pain [Unknown]
